FAERS Safety Report 11418475 (Version 2)
Quarter: 2015Q4

REPORT INFORMATION
  Report Type: Spontaneous
  Country: US (occurrence: US)
  Receive Date: 20150826
  Receipt Date: 20151128
  Transmission Date: 20160304
  Serious: No
  Sender: FDA-Public Use
  Company Number: US-NOVEN PHARMACEUTICALS, INC.-US2015000595

PATIENT
  Age: 43 Year
  Sex: Female

DRUGS (1)
  1. MINIVELLE [Suspect]
     Active Substance: ESTRADIOL
     Indication: PROPHYLAXIS
     Dosage: UNK, UNKNOWN
     Route: 062
     Dates: start: 201507

REACTIONS (2)
  - No adverse event [Unknown]
  - Drug administration error [Unknown]

NARRATIVE: CASE EVENT DATE: 201507
